FAERS Safety Report 21284099 (Version 2)
Quarter: 2022Q3

REPORT INFORMATION
  Report Type: Spontaneous
  Country: CN (occurrence: CN)
  Receive Date: 20220901
  Receipt Date: 20220927
  Transmission Date: 20221027
  Serious: Yes (Other)
  Sender: FDA-Public Use
  Company Number: CN-TAKEDA-2022TUS059958

PATIENT
  Age: 63 Year
  Sex: Female
  Weight: 70 kg

DRUGS (10)
  1. PANTOPRAZOLE [Suspect]
     Active Substance: PANTOPRAZOLE
     Indication: Prophylaxis
     Dosage: 40 MILLIGRAM, QD
     Route: 041
     Dates: start: 20220809, end: 20220816
  2. ATORVASTATIN CALCIUM [Suspect]
     Active Substance: ATORVASTATIN CALCIUM
     Indication: Lipid metabolism disorder
     Dosage: 20 MILLIGRAM, QD
     Route: 048
     Dates: start: 20220806, end: 20220816
  3. VOGLIBOSE [Suspect]
     Active Substance: VOGLIBOSE
     Indication: Hyperglycaemia
     Dosage: 0.2 MILLIGRAM, TID
     Route: 048
     Dates: start: 20220810, end: 20220817
  4. UNSPECIFIED INGREDIENT [Suspect]
     Active Substance: UNSPECIFIED INGREDIENT
     Indication: Prophylaxis
     Dosage: 5000 INTERNATIONAL UNIT, BID
     Route: 058
     Dates: start: 20220806, end: 20220816
  5. EDARAVONE [Suspect]
     Active Substance: EDARAVONE
     Indication: Myelopathy
     Dosage: 15 MILLILITER, BID
     Route: 041
     Dates: start: 20220808, end: 20220816
  6. GABAPENTIN [Suspect]
     Active Substance: GABAPENTIN
     Indication: Analgesic therapy
     Dosage: 0.3 GRAM, TID
     Route: 048
     Dates: start: 20220806, end: 20220816
  7. DEXAMETHASONE SODIUM PHOSPHATE [Suspect]
     Active Substance: DEXAMETHASONE SODIUM PHOSPHATE
     Indication: Myelopathy
     Dosage: 10 MILLIGRAM, QD
     Route: 041
     Dates: start: 20220808, end: 20220810
  8. DEXAMETHASONE SODIUM PHOSPHATE [Suspect]
     Active Substance: DEXAMETHASONE SODIUM PHOSPHATE
     Dosage: 5 MILLIGRAM, QD
     Route: 041
     Dates: start: 20220811, end: 20220816
  9. DULOXETINE HYDROCHLORIDE [Suspect]
     Active Substance: DULOXETINE HYDROCHLORIDE
     Indication: Analgesic therapy
     Dosage: 20 MILLIGRAM, QD
     Route: 048
     Dates: start: 20220806, end: 20220816
  10. SODIUM CHLORIDE [Suspect]
     Active Substance: SODIUM CHLORIDE
     Indication: Menstrual disorder
     Dosage: 100 MILLILITER, BID
     Route: 041
     Dates: start: 20220808, end: 20220816

REACTIONS (1)
  - Hepatic function abnormal [Recovering/Resolving]

NARRATIVE: CASE EVENT DATE: 20220812
